FAERS Safety Report 13259081 (Version 2)
Quarter: 2017Q1

REPORT INFORMATION
  Report Type: Report from Study
  Country: None (occurrence: US)
  Receive Date: 20170222
  Receipt Date: 20170223
  Transmission Date: 20170428
  Serious: Yes (Life-Threatening, Other)
  Sender: FDA-Public Use
  Company Number: US-ABBVIE-16K-163-1645768-00

PATIENT
  Age: 63 Year
  Sex: Female

DRUGS (1)
  1. HUMIRA [Suspect]
     Active Substance: ADALIMUMAB
     Indication: COLITIS ULCERATIVE
     Route: 058
     Dates: start: 20160317

REACTIONS (2)
  - Adverse drug reaction [Unknown]
  - Cholecystectomy [Recovered/Resolved]

NARRATIVE: CASE EVENT DATE: 20160504
